FAERS Safety Report 7229574-2 (Version None)
Quarter: 2011Q1

REPORT INFORMATION
  Report Type: 
  Country: None (occurrence: None)
  Receive Date: 20110117
  Receipt Date: 20100825
  Transmission Date: 20110831
  Serious: No
  Sender: FDA-Public Use
  Company Number: US-TYCO HEALTHCARE/MALLINCKRODT-T201001883

PATIENT
  Sex: Male

DRUGS (1)
  1. OPTIRAY 350 [Suspect]
     Indication: SCAN BRAIN
     Dosage: 50 UNK, SINGLE
     Route: 042
     Dates: start: 20100825, end: 20100825

REACTIONS (5)
  - NASAL DISCOMFORT [None]
  - NASAL CONGESTION [None]
  - ERYTHEMA [None]
  - SNEEZING [None]
  - LACRIMATION INCREASED [None]
